FAERS Safety Report 8718184 (Version 2)
Quarter: 2013Q4

REPORT INFORMATION
  Report Type: Spontaneous
  Country: US (occurrence: US)
  Receive Date: 20120810
  Receipt Date: 20131031
  Transmission Date: 20140711
  Serious: Yes (Disabling)
  Sender: FDA-Public Use
  Company Number: US-MERCK-1208USA003067

PATIENT
  Age: 81 Year
  Sex: Female

DRUGS (1)
  1. FOSAMAX [Suspect]
     Indication: BONE DISORDER
     Dosage: 1 DF, QW
     Route: 048
     Dates: start: 2009, end: 201201

REACTIONS (2)
  - Abasia [Recovering/Resolving]
  - Pain in extremity [Recovering/Resolving]
